FAERS Safety Report 14360727 (Version 1)
Quarter: 2018Q1

REPORT INFORMATION
  Report Type: Report from Study
  Country: US (occurrence: US)
  Receive Date: 20180106
  Receipt Date: 20180106
  Transmission Date: 20180509
  Serious: Yes (Hospitalization)
  Sender: FDA-Public Use
  Company Number: US-CELGENEUS-USA-20180100784

PATIENT
  Age: 69 Year
  Sex: Male
  Weight: 69.92 kg

DRUGS (3)
  1. CARFILZOMIB [Suspect]
     Active Substance: CARFILZOMIB
     Indication: PLASMA CELL MYELOMA
     Dosage: 21.5 MILLIGRAM/SQ. METER
     Route: 041
     Dates: start: 20170613
  2. DEXAMETHASONE IV [Suspect]
     Active Substance: DEXAMETHASONE
     Indication: PLASMA CELL MYELOMA
     Dosage: 20 MILLIGRAM
     Route: 041
     Dates: start: 20170613
  3. POMALYST [Suspect]
     Active Substance: POMALIDOMIDE
     Indication: PLASMA CELL MYELOMA
     Dosage: 3 MILLIGRAM
     Route: 048
     Dates: start: 20170915

REACTIONS (2)
  - Hyperkalaemia [Recovered/Resolved]
  - Muscular weakness [Recovered/Resolved]

NARRATIVE: CASE EVENT DATE: 20170925
